FAERS Safety Report 6642589-8 (Version None)
Quarter: 2010Q1

REPORT INFORMATION
  Report Type: 
  Country: None (occurrence: None)
  Receive Date: 20100319
  Receipt Date: 20100310
  Transmission Date: 20100710
  Serious: Yes (Hospitalization)
  Sender: FDA-Public Use
  Company Number: AR-ASTRAZENECA-2010SE10884

PATIENT

DRUGS (1)
  1. DURACAINE HYPERBARIC [Suspect]
     Route: 037
     Dates: start: 20100201, end: 20100201

REACTIONS (7)
  - DYSAESTHESIA [None]
  - EXTENSOR PLANTAR RESPONSE [None]
  - FACIAL PAIN [None]
  - HEADACHE [None]
  - NAUSEA [None]
  - NECK PAIN [None]
  - VOMITING [None]
